FAERS Safety Report 21075981 (Version 3)
Quarter: 2025Q3

REPORT INFORMATION
  Report Type: Report from Study
  Country: US (occurrence: US)
  Receive Date: 20220713
  Receipt Date: 20250714
  Transmission Date: 20251021
  Serious: Yes (Hospitalization, Other)
  Sender: TAKEDA
  Company Number: US-TAKEDA-US202017610

PATIENT
  Age: 76 Year
  Sex: Female

DRUGS (2)
  1. HUMAN IMMUNOGLOBULIN G\HYALURONIDASE RECOMBINANT HUMAN [Suspect]
     Active Substance: HUMAN IMMUNOGLOBULIN G\HYALURONIDASE (HUMAN RECOMBINANT)
     Indication: Primary immunodeficiency syndrome
     Dosage: 40 GRAM, Q4WEEKS
     Dates: start: 20170131
  2. HUMAN IMMUNOGLOBULIN G\HYALURONIDASE RECOMBINANT HUMAN [Suspect]
     Active Substance: HUMAN IMMUNOGLOBULIN G\HYALURONIDASE (HUMAN RECOMBINANT)
     Indication: Immunodeficiency common variable
     Dosage: 40 GRAM, Q4WEEKS

REACTIONS (23)
  - Cervical vertebral fracture [Unknown]
  - Cardiac disorder [Unknown]
  - Rhinovirus infection [Unknown]
  - Renal failure [Unknown]
  - Incorrect drug administration rate [Unknown]
  - Blood pressure decreased [Unknown]
  - Tremor [Unknown]
  - Back pain [Unknown]
  - Eye contusion [Unknown]
  - Fall [Unknown]
  - Face injury [Unknown]
  - Limb injury [Unknown]
  - Pain [Unknown]
  - Arthritis [Unknown]
  - Feeling of body temperature change [Unknown]
  - Tooth infection [Unknown]
  - Weight increased [Unknown]
  - Hypersomnia [Unknown]
  - Peripheral swelling [Unknown]
  - Pleural effusion [Unknown]
  - Asthenia [Unknown]
  - Diarrhoea [Unknown]
  - Headache [Unknown]

NARRATIVE: CASE EVENT DATE: 20200527
